FAERS Safety Report 25016704 (Version 1)
Quarter: 2025Q1

REPORT INFORMATION
  Report Type: Report from Study
  Country: BR (occurrence: BR)
  Receive Date: 20250227
  Receipt Date: 20250227
  Transmission Date: 20250408
  Serious: Yes (Other)
  Sender: JOHNSON AND JOHNSON
  Company Number: BR-JNJFOC-20250258596

PATIENT
  Age: 62 Year
  Sex: Female
  Weight: 80 kg

DRUGS (1)
  1. REMICADE [Suspect]
     Active Substance: INFLIXIMAB
     Indication: Rheumatoid arthritis
     Dosage: 141 MG IN 10 MG OF DILUTION SOLUTION AND PREPARE IN 0.9% SODIUM CHLORIDE TO 250 MG
     Route: 041
     Dates: start: 2021

REACTIONS (10)
  - Rheumatoid arthritis [Unknown]
  - Suicidal ideation [Unknown]
  - Visual impairment [Unknown]
  - Nervousness [Unknown]
  - Infusion related reaction [Unknown]
  - Off label use [Unknown]
  - Body height decreased [Unknown]
  - Depression [Unknown]
  - Herpes dermatitis [Unknown]
  - Vertigo [Unknown]
